FAERS Safety Report 7356395-2 (Version None)
Quarter: 2011Q1

REPORT INFORMATION
  Report Type: 
  Country: None (occurrence: None)
  Receive Date: 20110316
  Receipt Date: 20110307
  Transmission Date: 20110831
  Serious: Yes (Hospitalization)
  Sender: FDA-Public Use
  Company Number: US-ELI_LILLY_AND_COMPANY-US201103002590

PATIENT
  Sex: Male

DRUGS (4)
  1. HUMULIN 70/30 [Suspect]
     Dosage: 20 U, EACH EVENING
     Dates: start: 20080101
  2. HUMULIN 70/30 [Suspect]
     Indication: DIABETES MELLITUS
     Dosage: 40 U, EACH MORNING
     Dates: start: 20080101
  3. HUMULIN 70/30 [Suspect]
     Dosage: 35 U, EACH EVENING
  4. HUMULIN 70/30 [Suspect]
     Dosage: 60 U, EACH MORNING

REACTIONS (9)
  - RIB FRACTURE [None]
  - BLOOD GLUCOSE INCREASED [None]
  - BLOOD PRESSURE DECREASED [None]
  - BLOOD GLUCOSE DECREASED [None]
  - TRAUMATIC LUNG INJURY [None]
  - FALL [None]
  - VISUAL IMPAIRMENT [None]
  - BLOOD GLUCOSE FLUCTUATION [None]
  - HYPERTENSION [None]
